FAERS Safety Report 7427794-5 (Version None)
Quarter: 2011Q2

REPORT INFORMATION
  Report Type: 
  Country: None (occurrence: None)
  Receive Date: 20110421
  Receipt Date: 20100127
  Transmission Date: 20111010
  Serious: No
  Sender: FDA-Public Use
  Company Number: US-BAYER-201012719NA

PATIENT
  Sex: Female

DRUGS (3)
  1. YAZ [Suspect]
     Indication: ACNE
     Dosage: 1 TABLET DAILY
     Route: 048
  2. YAZ [Interacting]
     Indication: CONTRACEPTION
  3. AMOXICILLIN [Interacting]
     Indication: PRODUCT USED FOR UNKNOWN INDICATION

REACTIONS (2)
  - VAGINAL HAEMORRHAGE [None]
  - ACNE [None]
